FAERS Safety Report 4731007-2 (Version None)
Quarter: 2005Q3

REPORT INFORMATION
  Report Type: 
  Country: None (occurrence: None)
  Receive Date: 20050719
  Receipt Date: 20041216
  Transmission Date: 20060218
  Serious: Yes (Hospitalization)
  Sender: FDA-Public Use
  Company Number: 2004BI001849

PATIENT
  Sex: Male

DRUGS (18)
  1. AVONEX [Suspect]
     Indication: MULTIPLE SCLEROSIS
     Dosage: 30 UG;QW;IM
     Route: 030
     Dates: start: 20040501
  2. FLOMAX [Concomitant]
  3. WELLBUTRIN [Concomitant]
  4. CELEXA [Concomitant]
  5. AMBIEN [Concomitant]
  6. BACLOFEN [Concomitant]
  7. IRON (NOS) [Concomitant]
  8. TRILEPTAL [Concomitant]
  9. SULFASALAZINE [Concomitant]
  10. INDERAL [Concomitant]
  11. VITAMIN B6 [Concomitant]
  12. PRIMIDONE [Concomitant]
  13. NORVASC [Concomitant]
  14. FOLIC ACID [Concomitant]
  15. ASPIRIN [Concomitant]
  16. CITRACAL [Concomitant]
  17. COSAMIN DS [Concomitant]
  18. MULTIVITAMIN [Concomitant]

REACTIONS (1)
  - MULTIPLE SCLEROSIS RELAPSE [None]
